FAERS Safety Report 13000539 (Version 6)
Quarter: 2018Q2

REPORT INFORMATION
  Report Type: Spontaneous
  Country: IT (occurrence: IT)
  Receive Date: 20161206
  Receipt Date: 20180517
  Transmission Date: 20180711
  Serious: No
  Sender: FDA-Public Use
  Company Number: IT-ROCHE-1863256

PATIENT
  Age: 5 Year
  Sex: Female

DRUGS (4)
  1. IRINOTECAN HYDROCHLORIDE. [Suspect]
     Active Substance: IRINOTECAN HYDROCHLORIDE
     Indication: NEPHROBLASTOMA
     Dosage: 20 MG/M2 ON DAYS 1-5 AND ON DAYS 8-12,EVERY 3 WEEK
     Route: 042
  2. VINCRISTINA [Suspect]
     Active Substance: VINCRISTINE
     Indication: NEPHROBLASTOMA
     Dosage: 1.5 MG/M2 ON DAY 1 AND ON DAY 8, EVERY 3 WEEKS.
     Route: 042
  3. BEVACIZUMAB. [Suspect]
     Active Substance: BEVACIZUMAB
     Indication: NEPHROBLASTOMA
     Dosage: ON DAY 1
     Route: 042
  4. CEFIXIME. [Concomitant]
     Active Substance: CEFIXIME
     Indication: PROPHYLAXIS AGAINST DIARRHOEA
     Route: 048

REACTIONS (2)
  - Haematotoxicity [Unknown]
  - Diarrhoea [Unknown]
